FAERS Safety Report 12768992 (Version 1)
Quarter: 2016Q3

REPORT INFORMATION
  Report Type: Spontaneous
  Country: US (occurrence: US)
  Receive Date: 20160921
  Receipt Date: 20160921
  Transmission Date: 20161109
  Serious: No
  Sender: FDA-Public Use
  Company Number: US-ASTRAZENECA-2016SE94487

PATIENT
  Age: 18341 Day
  Sex: Male
  Weight: 57.6 kg

DRUGS (4)
  1. CRESTOR [Suspect]
     Active Substance: ROSUVASTATIN CALCIUM
     Indication: BLOOD CHOLESTEROL INCREASED
     Route: 048
     Dates: start: 2013, end: 2013
  2. ATORVASTATIN [Suspect]
     Active Substance: ATORVASTATIN
     Indication: BLOOD CHOLESTEROL INCREASED
     Route: 065
  3. PRAVASTATIN. [Suspect]
     Active Substance: PRAVASTATIN
     Indication: BLOOD CHOLESTEROL INCREASED
     Route: 065
     Dates: start: 20160623
  4. ATORVASTATIN [Suspect]
     Active Substance: ATORVASTATIN
     Indication: BLOOD CHOLESTEROL INCREASED
     Route: 065
     Dates: start: 20160722

REACTIONS (11)
  - Fatigue [Unknown]
  - Feeling abnormal [Unknown]
  - Eye disorder [Unknown]
  - Blood cholesterol increased [Unknown]
  - Vomiting [Unknown]
  - Personality change [Unknown]
  - Vision blurred [Unknown]
  - Drug dose omission [Unknown]
  - Drug ineffective [Unknown]
  - Malaise [Unknown]
  - Flatulence [Unknown]

NARRATIVE: CASE EVENT DATE: 20160902
